FAERS Safety Report 9116496 (Version 1)
Quarter: 2013Q1

REPORT INFORMATION
  Report Type: Spontaneous
  Country: FR (occurrence: FR)
  Receive Date: 20130225
  Receipt Date: 20130225
  Transmission Date: 20140127
  Serious: Yes (Hospitalization)
  Sender: FDA-Public Use
  Company Number: FR-US-EMD SERONO, INC.-7194665

PATIENT
  Age: 40 Year
  Sex: Female

DRUGS (9)
  1. OVITRELLE [Suspect]
     Indication: OVULATION INDUCTION
     Route: 058
     Dates: start: 20100324
  2. OVITRELLE [Suspect]
     Route: 058
     Dates: start: 20100418
  3. OVITRELLE [Suspect]
     Dates: start: 20100510
  4. OVITRELLE [Suspect]
     Route: 058
     Dates: start: 20101025
  5. PUREGON [Suspect]
     Indication: OVULATION INDUCTION
     Route: 058
     Dates: start: 20100317, end: 20100323
  6. PUREGON [Suspect]
     Route: 058
     Dates: start: 20100409, end: 20100417
  7. PUREGON [Suspect]
     Route: 058
     Dates: start: 20100502, end: 20100509
  8. PUREGON [Suspect]
     Route: 058
     Dates: start: 20101002, end: 20101009
  9. AVLOCARDYL [Concomitant]
     Indication: PRODUCT USED FOR UNKNOWN INDICATION

REACTIONS (1)
  - Invasive ductal breast carcinoma [Not Recovered/Not Resolved]
